FAERS Safety Report 20061455 (Version 4)
Quarter: 2023Q2

REPORT INFORMATION
  Report Type: Spontaneous
  Country: DE (occurrence: DE)
  Receive Date: 20211112
  Receipt Date: 20230626
  Transmission Date: 20230721
  Serious: Yes (Hospitalization, Other)
  Sender: FDA-Public Use
  Company Number: DE-NOVARTISPH-NVSC2021DE250739

PATIENT
  Age: 28 Year
  Sex: Female

DRUGS (20)
  1. ACETAMINOPHEN [Suspect]
     Active Substance: ACETAMINOPHEN
     Indication: Infusion related reaction
     Dosage: 1 G (EVERY 6 MONTH)
     Route: 042
     Dates: start: 20190903
  2. ACETAMINOPHEN [Suspect]
     Active Substance: ACETAMINOPHEN
     Dosage: UNK
     Route: 065
  3. PREDNISOLONE [Suspect]
     Active Substance: PREDNISOLONE
     Indication: Infusion related reaction
     Dosage: 100 MG
     Route: 042
     Dates: start: 20190903
  4. PREDNISOLONE [Suspect]
     Active Substance: PREDNISOLONE
     Dosage: UNK
     Route: 042
     Dates: start: 20201028
  5. OCREVUS [Suspect]
     Active Substance: OCRELIZUMAB
     Indication: Relapsing-remitting multiple sclerosis
     Dosage: 2ND MAINTENANCE DOSE ON 28/OCT/2020
     Route: 042
     Dates: start: 20190903
  6. OCREVUS [Suspect]
     Active Substance: OCRELIZUMAB
     Dosage: 600 MG
     Route: 042
  7. OCREVUS [Suspect]
     Active Substance: OCRELIZUMAB
     Dosage: 600 MG
     Route: 042
     Dates: start: 20201028
  8. OCREVUS [Suspect]
     Active Substance: OCRELIZUMAB
     Dosage: UNK
     Route: 065
  9. OCREVUS [Suspect]
     Active Substance: OCRELIZUMAB
     Dosage: 300 MG (2ND MAINTENANCE DOSE)
     Route: 042
  10. DIMETHINDENE MALEATE [Suspect]
     Active Substance: DIMETHINDENE MALEATE
     Indication: Infusion related reaction
     Dosage: LAST DOSE OF HISTAKUT WAS GIVEN ON 28/OCT/2020
     Route: 042
     Dates: start: 20190903
  11. DIMETHINDENE MALEATE [Suspect]
     Active Substance: DIMETHINDENE MALEATE
     Dosage: UNK
     Route: 042
     Dates: start: 20201028
  12. PREGABALIN [Concomitant]
     Active Substance: PREGABALIN
     Indication: Product used for unknown indication
     Dosage: UNK
     Route: 065
  13. METOPROLOL [Concomitant]
     Active Substance: METOPROLOL
     Indication: Product used for unknown indication
     Dosage: UNK
     Route: 065
  14. CHOLECALCIFEROL [Concomitant]
     Active Substance: CHOLECALCIFEROL
     Indication: Product used for unknown indication
     Dosage: 1000 IU, QD
     Route: 065
     Dates: start: 201906
  15. FOLIC ACID [Concomitant]
     Active Substance: FOLIC ACID
     Indication: Product used for unknown indication
     Dosage: UNK
     Route: 065
  16. LEVOTHYROXINE SODIUM [Concomitant]
     Active Substance: LEVOTHYROXINE SODIUM
     Indication: Product used for unknown indication
     Dosage: 75 UG
     Route: 065
  17. LEVOTHYROXINE SODIUM [Concomitant]
     Active Substance: LEVOTHYROXINE SODIUM
     Dosage: 125 UG
     Route: 065
  18. BISOPROLOL [Concomitant]
     Active Substance: BISOPROLOL
     Indication: Product used for unknown indication
     Dosage: 5 MG
     Route: 065
     Dates: start: 2008
  19. TILIDINE [Concomitant]
     Active Substance: TILIDINE
     Indication: Product used for unknown indication
     Dosage: 25 MG
     Route: 065
  20. HYDROCHLOROTHIAZIDE [Concomitant]
     Active Substance: HYDROCHLOROTHIAZIDE
     Indication: Product used for unknown indication
     Dosage: 25 MG
     Route: 065

REACTIONS (14)
  - Hepatic steatosis [Recovered/Resolved]
  - Hepatitis [Recovered/Resolved]
  - Weight decreased [Unknown]
  - Diarrhoea [Recovered/Resolved]
  - Asthenia [Recovered/Resolved]
  - Abdominal pain [Recovered/Resolved]
  - Haemorrhage in pregnancy [Recovered/Resolved]
  - Multiple sclerosis relapse [Recovered/Resolved]
  - Gestational diabetes [Recovered/Resolved]
  - Throat irritation [Recovered/Resolved]
  - Dizziness [Recovered/Resolved]
  - Headache [Recovered/Resolved]
  - Fatigue [Recovered/Resolved]
  - Maternal exposure before pregnancy [Unknown]

NARRATIVE: CASE EVENT DATE: 20190903
